FAERS Safety Report 5514304-2 (Version None)
Quarter: 2007Q4

REPORT INFORMATION
  Report Type: 
  Country: None (occurrence: None)
  Receive Date: 20071113
  Receipt Date: 20070406
  Transmission Date: 20080405
  Serious: No
  Sender: FDA-Public Use
  Company Number: A0646189A

PATIENT
  Age: 61 Year
  Sex: Female

DRUGS (3)
  1. COREG [Suspect]
     Indication: HYPERTENSION
     Dosage: 25MG TWICE PER DAY
     Route: 048
     Dates: start: 20050101
  2. SYNTHROID [Concomitant]
  3. ENTOCORT EC [Concomitant]

REACTIONS (2)
  - BLOOD PRESSURE INCREASED [None]
  - FORMICATION [None]
